FAERS Safety Report 23558388 (Version 2)
Quarter: 2025Q2

REPORT INFORMATION
  Report Type: Report from Study
  Country: DE (occurrence: DE)
  Receive Date: 20240223
  Receipt Date: 20250422
  Transmission Date: 20250717
  Serious: Yes (Hospitalization)
  Sender: AUROBINDO
  Company Number: DE-GERMAN-LIT/DEU/24/0002310

PATIENT
  Age: 77 Year
  Sex: Male

DRUGS (11)
  1. PANTOPRAZOLE [Interacting]
     Active Substance: PANTOPRAZOLE
     Indication: Product used for unknown indication
     Route: 065
  2. METHOTREXATE [Interacting]
     Active Substance: METHOTREXATE
     Indication: Giant cell arteritis
     Dosage: 15 MILLIGRAM, EVERY WEEK
     Route: 065
  3. METHOTREXATE [Interacting]
     Active Substance: METHOTREXATE
     Indication: Rheumatoid arthritis
  4. METHOTREXATE [Interacting]
     Active Substance: METHOTREXATE
     Indication: Psoriatic arthropathy
  5. METHOTREXATE [Interacting]
     Active Substance: METHOTREXATE
     Indication: Psoriasis
  6. METHOTREXATE [Interacting]
     Active Substance: METHOTREXATE
     Indication: Myositis
  7. OMEPRAZOLE [Interacting]
     Active Substance: OMEPRAZOLE
     Indication: Product used for unknown indication
     Route: 065
  8. TORSEMIDE [Interacting]
     Active Substance: TORSEMIDE
     Indication: Product used for unknown indication
     Route: 065
  9. XIPAMIDE [Interacting]
     Active Substance: XIPAMIDE
     Indication: Product used for unknown indication
     Route: 065
  10. LEVETIRACETAM [Interacting]
     Active Substance: LEVETIRACETAM
     Indication: Product used for unknown indication
     Route: 065
  11. RAMIPRIL [Concomitant]
     Active Substance: RAMIPRIL
     Indication: Product used for unknown indication
     Route: 065

REACTIONS (2)
  - Drug interaction [Unknown]
  - Toxicity to various agents [Recovered/Resolved]
